FAERS Safety Report 17505748 (Version 2)
Quarter: 2020Q1

REPORT INFORMATION
  Report Type: Report from Study
  Country: None (occurrence: US)
  Receive Date: 20200306
  Receipt Date: 20200317
  Transmission Date: 20200409
  Serious: No
  Sender: FDA-Public Use
  Company Number: US-ABBVIE-20K-163-3281871-00

PATIENT
  Age: 61 Year
  Sex: Female

DRUGS (4)
  1. HUMIRA [Suspect]
     Active Substance: ADALIMUMAB
     Route: 058
     Dates: start: 202001, end: 20200131
  2. HUMIRA [Suspect]
     Active Substance: ADALIMUMAB
     Route: 058
     Dates: start: 20200306
  3. HUMIRA [Suspect]
     Active Substance: ADALIMUMAB
     Indication: RHEUMATOID ARTHRITIS
     Route: 058
     Dates: end: 202001
  4. HUMIRA [Suspect]
     Active Substance: ADALIMUMAB
     Route: 058
     Dates: start: 20200201, end: 20200207

REACTIONS (9)
  - Pain in extremity [Unknown]
  - Malaise [Recovering/Resolving]
  - Influenza [Unknown]
  - Peripheral swelling [Unknown]
  - Upper respiratory tract infection [Recovering/Resolving]
  - Feeling hot [Unknown]
  - Joint range of motion decreased [Unknown]
  - Skin infection [Unknown]
  - Erythema [Unknown]

NARRATIVE: CASE EVENT DATE: 2020
